FAERS Safety Report 4874751-9 (Version None)
Quarter: 2006Q1

REPORT INFORMATION
  Report Type: 
  Country: None (occurrence: None)
  Receive Date: 20060109
  Receipt Date: 20041119
  Transmission Date: 20060701
  Serious: Yes (Other)
  Sender: FDA-Public Use
  Company Number: PHHO2004AR16470

PATIENT
  Age: 70 Year
  Sex: Female
  Weight: 61 kg

DRUGS (8)
  1. OSTRAM-VIT.D3 [Concomitant]
     Indication: OSTEOPOROSIS POSTMENOPAUSAL
     Dosage: UNK, UNK
  2. ONDASETRON [Concomitant]
     Indication: HODGKIN'S DISEASE
  3. ADRIAMYCIN PFS [Suspect]
     Indication: HODGKIN'S DISEASE
     Dosage: 37.5 MG, UNK
  4. VINBLASTINE [Suspect]
     Indication: HODGKIN'S DISEASE
     Dosage: 10 MG, UNK
  5. BLEOMYCIN [Suspect]
     Indication: HODGKIN'S DISEASE
     Dosage: 15 MG, UNK
  6. DACARBAZINE [Suspect]
     Indication: HODGKIN'S DISEASE
     Dosage: 400 MG, UNK
  7. ZOLEDRONATE VS PLACEBO [Suspect]
     Indication: OSTEOPOROSIS POSTMENOPAUSAL
     Dosage: 5 MG, ONCE YEARLY
     Route: 042
     Dates: start: 20030530
  8. ZOLEDRONATE VS PLACEBO [Suspect]
     Dosage: DOUBLE BLIND
     Dates: start: 20030530

REACTIONS (9)
  - ALOPECIA [None]
  - ARTERIAL INSUFFICIENCY [None]
  - ASTHENIA [None]
  - HODGKIN'S DISEASE [None]
  - HYPERTENSION [None]
  - LYMPHADENECTOMY [None]
  - LYMPHADENOPATHY [None]
  - NAUSEA [None]
  - NODULE [None]
